FAERS Safety Report 5421991-6 (Version None)
Quarter: 2007Q3

REPORT INFORMATION
  Report Type: 
  Country: None (occurrence: None)
  Receive Date: 20070822
  Receipt Date: 20070814
  Transmission Date: 20080115
  Serious: Yes (Hospitalization)
  Sender: FDA-Public Use
  Company Number: PHBS2007BR13703

PATIENT
  Age: 57 Year
  Sex: Male

DRUGS (1)
  1. GLEEVEC [Suspect]
     Indication: CHRONIC MYELOID LEUKAEMIA
     Dosage: 400 MG/D
     Route: 048
     Dates: start: 20030915, end: 20070805

REACTIONS (9)
  - APLASIA [None]
  - BLOOD ALBUMIN DECREASED [None]
  - BRONCHOPNEUMONIA [None]
  - HAEMATOCRIT DECREASED [None]
  - HEPATOSPLENOMEGALY [None]
  - PLATELET COUNT DECREASED [None]
  - PLEURAL EFFUSION [None]
  - PYREXIA [None]
  - WHITE BLOOD CELL COUNT DECREASED [None]
